FAERS Safety Report 9170409 (Version 2)
Quarter: 2013Q2

REPORT INFORMATION
  Report Type: Spontaneous
  Country: GB (occurrence: GB)
  Receive Date: 20130319
  Receipt Date: 20130523
  Transmission Date: 20140414
  Serious: Yes (Other)
  Sender: FDA-Public Use
  Company Number: GB-RANBAXY-2013RR-66155

PATIENT
  Age: 41 Year
  Sex: Male

DRUGS (7)
  1. CITALOPRAM [Suspect]
     Indication: DEPRESSION
     Dosage: UNK
     Route: 065
  2. FLUOXETINE [Suspect]
     Indication: DEPRESSION
     Dosage: UNK
     Route: 065
  3. QUETIAPINE [Suspect]
     Indication: BIPOLAR DISORDER
     Dosage: UNK
     Route: 065
  4. VALPROIC ACID [Suspect]
     Indication: BIPOLAR DISORDER
     Route: 065
  5. LITHIUM [Suspect]
     Indication: BIPOLAR DISORDER
     Route: 065
  6. LAMOTRIGINE [Concomitant]
     Indication: BIPOLAR DISORDER
     Dosage: 250 MG, UNK
     Route: 065
  7. LAMOTRIGINE [Concomitant]
     Indication: EPILEPSY

REACTIONS (3)
  - Bipolar disorder [Not Recovered/Not Resolved]
  - Migraine [Unknown]
  - Convulsion [Not Recovered/Not Resolved]
